FAERS Safety Report 6756020-5 (Version None)
Quarter: 2010Q2

REPORT INFORMATION
  Report Type: 
  Country: None (occurrence: None)
  Receive Date: 20100524
  Receipt Date: 20100203
  Transmission Date: 20101027
  Serious: No
  Sender: FDA-Public Use
  Company Number: 006212

PATIENT
  Sex: Female
  Weight: 67.1 kg

DRUGS (6)
  1. CIMZIA [Suspect]
     Indication: COLITIS ULCERATIVE
     Dosage: (400 MG SUBCUTANEOUS)
     Route: 058
     Dates: start: 20100115
  2. PREDNISONE [Concomitant]
  3. ASACOL [Concomitant]
  4. DAILY MULTIVITAMIN [Concomitant]
  5. OYSTER SHELL CALCIUM WITH VITAMIN D/01746301/ [Concomitant]
  6. FISH OIL [Concomitant]

REACTIONS (3)
  - OFF LABEL USE [None]
  - PRURITUS [None]
  - RASH [None]
